FAERS Safety Report 5386576-9 (Version None)
Quarter: 2007Q3

REPORT INFORMATION
  Report Type: 
  Country: None (occurrence: None)
  Receive Date: 20070713
  Receipt Date: 20070706
  Transmission Date: 20080115
  Serious: Yes (Death)
  Sender: FDA-Public Use
  Company Number: B0476769A

PATIENT
  Age: 64 Year
  Sex: Male

DRUGS (14)
  1. ARTIST [Suspect]
     Indication: CARDIAC FAILURE CHRONIC
     Dosage: 1.25MG TWICE PER DAY
     Route: 048
     Dates: start: 20070210, end: 20070220
  2. ALDACTONE [Concomitant]
     Indication: DRUG USE FOR UNKNOWN INDICATION
     Route: 065
  3. AMIODARONE HCL [Concomitant]
     Indication: DRUG USE FOR UNKNOWN INDICATION
     Route: 065
  4. NITOROL R [Concomitant]
     Indication: DRUG USE FOR UNKNOWN INDICATION
     Route: 065
  5. THYRADIN S [Concomitant]
     Indication: DRUG USE FOR UNKNOWN INDICATION
     Route: 065
  6. PURSENNID [Concomitant]
     Indication: DRUG USE FOR UNKNOWN INDICATION
     Route: 065
  7. ASPIRIN [Concomitant]
     Indication: DRUG USE FOR UNKNOWN INDICATION
     Route: 065
  8. NAUZELIN [Concomitant]
     Indication: DRUG USE FOR UNKNOWN INDICATION
     Route: 065
  9. SIGMART [Concomitant]
     Indication: DRUG USE FOR UNKNOWN INDICATION
     Route: 065
  10. ASPARA K [Concomitant]
     Indication: DRUG USE FOR UNKNOWN INDICATION
     Route: 065
  11. MUCODYNE [Concomitant]
     Indication: DRUG USE FOR UNKNOWN INDICATION
     Route: 065
  12. DEPAS [Concomitant]
     Indication: DRUG USE FOR UNKNOWN INDICATION
     Route: 065
  13. GASTER D [Concomitant]
     Indication: DRUG USE FOR UNKNOWN INDICATION
  14. LASIX [Concomitant]
     Indication: DRUG USE FOR UNKNOWN INDICATION
     Route: 065

REACTIONS (11)
  - ALANINE AMINOTRANSFERASE INCREASED [None]
  - ASPARTATE AMINOTRANSFERASE INCREASED [None]
  - HEPATIC ENZYME INCREASED [None]
  - HEPATITIS FULMINANT [None]
  - LIVER DISORDER [None]
  - METABOLIC ACIDOSIS [None]
  - MOUTH BREATHING [None]
  - PULSE ABSENT [None]
  - RESPIRATORY ALKALOSIS [None]
  - SHOCK [None]
  - TACHYPNOEA [None]
